FAERS Safety Report 8994971 (Version 1)
Quarter: 2012Q4

REPORT INFORMATION
  Report Type: Spontaneous
  Country: US (occurrence: None)
  Receive Date: 20121228
  Receipt Date: 20121228
  Transmission Date: 20130627
  Serious: No
  Sender: FDA-Public Use
  Company Number: None

PATIENT
  Sex: Male
  Weight: 75.3 kg

DRUGS (2)
  1. BICALUTAMIDE [Suspect]
  2. LEUPROLIDE ACETATE [Suspect]

REACTIONS (10)
  - Hot flush [None]
  - Diarrhoea [None]
  - Proctalgia [None]
  - Rectal haemorrhage [None]
  - Nausea [None]
  - Dysuria [None]
  - Dry skin [None]
  - Hyperhidrosis [None]
  - Dizziness [None]
  - Presyncope [None]
